FAERS Safety Report 15098989 (Version 2)
Quarter: 2018Q3

REPORT INFORMATION
  Report Type: Spontaneous
  Country: GB (occurrence: GB)
  Receive Date: 20180702
  Receipt Date: 20180918
  Transmission Date: 20181010
  Serious: Yes (Life-Threatening, Hospitalization, Disabling, Other)
  Sender: FDA-Public Use
  Company Number: GB-MYLANLABS-2018M1047109

PATIENT
  Age: 83 Year
  Sex: Male
  Weight: 82 kg

DRUGS (1)
  1. LEVOFLOXACIN. [Suspect]
     Active Substance: LEVOFLOXACIN
     Indication: INFECTION
     Dosage: 2 DF, QD
     Route: 048
     Dates: start: 20180313, end: 20180315

REACTIONS (4)
  - Tremor [Unknown]
  - Insomnia [Recovering/Resolving]
  - Acute psychosis [Recovered/Resolved]
  - Myoclonus [Recovering/Resolving]

NARRATIVE: CASE EVENT DATE: 20180313
